FAERS Safety Report 5355057-0 (Version None)
Quarter: 2007Q2

REPORT INFORMATION
  Report Type: 
  Country: None (occurrence: None)
  Receive Date: 20070521
  Receipt Date: 20070416
  Transmission Date: 20071010
  Serious: No
  Sender: FDA-Public Use
  Company Number: WAES 0704USA03105

PATIENT
  Sex: Male

DRUGS (3)
  1. JANUVIA [Suspect]
     Indication: DIABETES MELLITUS NON-INSULIN-DEPENDENT
     Dosage: PO
     Route: 048
     Dates: start: 20070409, end: 20070415
  2. LOPID [Suspect]
  3. [THERAPY UNSPECIFIED] [Concomitant]

REACTIONS (2)
  - ADVERSE DRUG REACTION [None]
  - RASH GENERALISED [None]
